FAERS Safety Report 9778472 (Version 1)
Quarter: 2013Q4

REPORT INFORMATION
  Report Type: Spontaneous
  Country: US (occurrence: None)
  Receive Date: 20131220
  Receipt Date: 20131220
  Transmission Date: 20140711
  Serious: Yes (Other)
  Sender: FDA-Public Use
  Company Number: None

PATIENT
  Age: 50 Year
  Sex: Female
  Weight: 72.58 kg

DRUGS (1)
  1. DICLOFENAC [Suspect]
     Indication: GASTROINTESTINAL DISORDER
     Dosage: 1 TABLET, BID, ORAL
     Route: 048
     Dates: start: 20080101, end: 20131219

REACTIONS (6)
  - Constipation [None]
  - Abdominal pain [None]
  - Dizziness [None]
  - Headache [None]
  - Product substitution issue [None]
  - Product substitution issue [None]
